FAERS Safety Report 6039870-2 (Version None)
Quarter: 2009Q1

REPORT INFORMATION
  Report Type: 
  Country: None (occurrence: None)
  Receive Date: 20090116
  Receipt Date: 20090112
  Transmission Date: 20090719
  Serious: Yes (Hospitalization)
  Sender: FDA-Public Use
  Company Number: US-BIOGENIDEC-2005BI019616

PATIENT
  Age: 48 Year
  Sex: Male

DRUGS (2)
  1. AVONEX [Suspect]
     Indication: MULTIPLE SCLEROSIS
     Route: 030
     Dates: start: 19970201
  2. AVONEX [Suspect]
     Route: 030
     Dates: start: 20050412

REACTIONS (4)
  - ANKLE FRACTURE [None]
  - ARTHROPATHY [None]
  - FALL [None]
  - MUSCULOSKELETAL DISORDER [None]
